FAERS Safety Report 9625079 (Version 3)
Quarter: 2014Q1

REPORT INFORMATION
  Report Type: Spontaneous
  Country: US (occurrence: US)
  Receive Date: 20131016
  Receipt Date: 20140219
  Transmission Date: 20141002
  Serious: No
  Sender: FDA-Public Use
  Company Number: US-009507513-1309USA009305

PATIENT
  Sex: Female

DRUGS (7)
  1. VICTRELIS [Suspect]
     Indication: HEPATITIS C
     Dosage: 200 MG, 4 CAPSULES, THREE TIMES A DAY
     Route: 048
     Dates: start: 20130913, end: 20140110
  2. REBETOL [Suspect]
     Indication: HEPATITIS C
     Dosage: 200 MG, 2 PILLS, TWICE A DAY
     Route: 048
     Dates: start: 20130816, end: 20140110
  3. REBETOL [Suspect]
     Dosage: 2 TWICE A DAY
     Route: 048
     Dates: start: 201401
  4. PEGASYS [Suspect]
     Indication: HEPATITIS C
     Dosage: 0.5 ML, UNK
     Route: 058
     Dates: start: 20130816, end: 20140110
  5. PEGASYS [Suspect]
     Dosage: 0.3 ML, UNK
     Route: 058
     Dates: start: 20140111
  6. LITHIUM [Concomitant]
     Dosage: 300 MG, 2 IN AM AND 2 AT NIGHT
  7. LATUDA [Concomitant]
     Dosage: 40 MG, 1 AT BEDTIME

REACTIONS (11)
  - Laboratory test abnormal [Unknown]
  - Fatigue [Unknown]
  - Insomnia [Unknown]
  - Dysgeusia [Unknown]
  - Malaise [Unknown]
  - Influenza like illness [Unknown]
  - Pain [Unknown]
  - Headache [Unknown]
  - Anxiety [Unknown]
  - Amnesia [Unknown]
  - Anaemia [Recovering/Resolving]
